FAERS Safety Report 5117330-0 (Version None)
Quarter: 2006Q3

REPORT INFORMATION
  Report Type: 
  Country: None (occurrence: None)
  Receive Date: 20060929
  Receipt Date: 20060802
  Transmission Date: 20061208
  Serious: Yes (Hospitalization)
  Sender: FDA-Public Use
  Company Number: 2006AP03592

PATIENT
  Age: 19662 Day
  Sex: Male
  Weight: 67 kg

DRUGS (6)
  1. IRESSA [Suspect]
     Indication: COLORECTAL CANCER METASTATIC
     Route: 048
     Dates: start: 20040324, end: 20041014
  2. FLUOROURACIL [Suspect]
     Indication: COLORECTAL CANCER METASTATIC
     Dosage: BOLUS
     Route: 042
     Dates: start: 20040324, end: 20040407
  3. FLUOROURACIL [Suspect]
     Dosage: BOLUS
     Route: 042
     Dates: start: 20040407, end: 20040723
  4. OXALIPLATIN [Suspect]
     Indication: COLORECTAL CANCER METASTATIC
     Route: 042
     Dates: start: 20040324, end: 20040407
  5. OXALIPLATIN [Suspect]
     Route: 042
     Dates: start: 20040407, end: 20040721
  6. FOLINIC ACID [Suspect]
     Indication: COLORECTAL CANCER METASTATIC
     Route: 042
     Dates: start: 20040324, end: 20040721

REACTIONS (2)
  - DIARRHOEA [None]
  - HYPOKALAEMIA [None]
